FAERS Safety Report 6585312-8 (Version None)
Quarter: 2010Q1

REPORT INFORMATION
  Report Type: 
  Country: None (occurrence: None)
  Receive Date: 20100216
  Receipt Date: 20100216
  Transmission Date: 20100710
  Serious: Yes (Other)
  Sender: FDA-Public Use
  Company Number: None

PATIENT
  Sex: Female
  Weight: 42.6381 kg

DRUGS (2)
  1. ATIVAN [Suspect]
     Indication: ANXIETY
     Dosage: 2 MG TID ORAL
     Route: 048
  2. ATIVAN [Suspect]
     Indication: PANIC ATTACK
     Dosage: 2 MG TID ORAL
     Route: 048

REACTIONS (4)
  - AGITATION [None]
  - HYPERSENSITIVITY [None]
  - NAUSEA [None]
  - PRODUCT SUBSTITUTION ISSUE [None]
